FAERS Safety Report 5274481-8 (Version None)
Quarter: 2007Q1

REPORT INFORMATION
  Report Type: 
  Country: None (occurrence: None)
  Receive Date: 20070323
  Receipt Date: 20070314
  Transmission Date: 20070707
  Serious: Yes (Other)
  Sender: FDA-Public Use
  Company Number: SE-PFIZER INC-2007019666

PATIENT
  Sex: Female

DRUGS (24)
  1. PREDNISOLONE [Suspect]
     Dosage: DAILY DOSE:7.5MG
     Route: 048
  2. OPTINATE SEPTIMUM [Suspect]
     Indication: OSTEOPOROSIS
     Route: 048
     Dates: start: 20050708, end: 20061205
  3. KALCIPOS-D [Concomitant]
     Route: 048
  4. OMEPRAZOL ^RATIOPHARM^ [Concomitant]
     Route: 048
  5. BRICANYL [Concomitant]
     Route: 055
  6. FOLACIN [Concomitant]
     Route: 048
  7. LEVAXIN [Concomitant]
     Route: 048
  8. PANODIL [Concomitant]
     Route: 048
  9. LAXOBERAL [Concomitant]
     Route: 048
  10. HERACILLIN [Concomitant]
     Route: 048
  11. BETOLVEX [Concomitant]
     Route: 048
  12. DUPHALAC [Concomitant]
     Route: 048
  13. FENURIL [Concomitant]
     Route: 061
  14. OXASCAND [Concomitant]
     Route: 048
  15. TROMBYL [Concomitant]
     Route: 048
  16. MONOKET OD [Concomitant]
     Route: 048
  17. BETOPTIC S [Concomitant]
     Route: 047
  18. ACETYLCYSTEINE [Concomitant]
     Route: 048
  19. COMBIVENT [Concomitant]
     Route: 055
  20. XERODENT [Concomitant]
  21. OXYCONTIN [Concomitant]
     Route: 048
  22. CITALOPRAM HYDROBROMIDE [Concomitant]
     Route: 048
  23. SERETIDE DISKUS FORTE [Concomitant]
     Route: 055
  24. SERETIDE DISKUS FORTE [Concomitant]
     Route: 055

REACTIONS (1)
  - OSTEONECROSIS [None]
